FAERS Safety Report 8148657 (Version 2)
Quarter: 2013Q2

REPORT INFORMATION
  Report Type: Spontaneous
  Country: US (occurrence: US)
  Receive Date: 20110922
  Receipt Date: 20130409
  Transmission Date: 20140414
  Serious: Yes (Other)
  Sender: FDA-Public Use
  Company Number: US-ASTRAZENECA-2011SE12675

PATIENT
  Age: 589 Month
  Sex: Male
  Weight: 121 kg

DRUGS (5)
  1. SEROQUEL [Suspect]
     Dosage: ONE HALF TABLET BY MOUTH AT BEDTIME FOR TWO DAYS THEN ONE TABLET BY MOUTH AT BEDTIME
     Route: 048
     Dates: start: 20080218
  2. TRILIPIX [Concomitant]
     Indication: HYPERTRIGLYCERIDAEMIA
     Dates: start: 200907
  3. RANITIDINE [Concomitant]
     Route: 048
     Dates: start: 20080216
  4. LAMICTAL [Concomitant]
     Route: 048
     Dates: start: 20080303
  5. LEXAPRO [Concomitant]
     Route: 048
     Dates: start: 20080218

REACTIONS (3)
  - Diabetic coma [Unknown]
  - Pancreatitis [Unknown]
  - Type 2 diabetes mellitus [Unknown]
